FAERS Safety Report 17351119 (Version 2)
Quarter: 2020Q1

REPORT INFORMATION
  Report Type: Other
  Country: GB (occurrence: GB)
  Receive Date: 20200130
  Receipt Date: 20200313
  Transmission Date: 20200409
  Serious: Yes (Hospitalization, Other)
  Sender: FDA-Public Use
  Company Number: GB-STRIDES ARCOLAB LIMITED-2020SP000161

PATIENT
  Age: 33 Year
  Sex: Female

DRUGS (15)
  1. METFORMIN [Suspect]
     Active Substance: METFORMIN HYDROCHLORIDE
     Dosage: UNK
     Route: 048
     Dates: start: 2018
  2. CLOZARIL [Suspect]
     Active Substance: CLOZAPINE
     Dosage: UNK, TABLET
     Route: 048
     Dates: start: 2018
  3. DULOXETINE. [Suspect]
     Active Substance: DULOXETINE
     Indication: PRODUCT USED FOR UNKNOWN INDICATION
     Dosage: 120 MG, QD
     Route: 048
  4. DESOGESTREL [Suspect]
     Active Substance: DESOGESTREL
     Indication: CONTRACEPTION
     Dosage: UNK
     Route: 048
  5. CLOZARIL [Suspect]
     Active Substance: CLOZAPINE
     Dosage: DECREASED DOSE
     Route: 065
  6. PROMETHAZINE HYDROCHLORIDE. [Suspect]
     Active Substance: PROMETHAZINE HYDROCHLORIDE
     Dosage: UNK
     Route: 048
  7. METFORMIN [Suspect]
     Active Substance: METFORMIN HYDROCHLORIDE
     Indication: DIABETES MELLITUS
     Dosage: 500 MG, QD
     Route: 048
     Dates: start: 2018
  8. METFORMIN [Suspect]
     Active Substance: METFORMIN HYDROCHLORIDE
     Dosage: DECREASED DOSE
     Route: 065
  9. DULOXETINE. [Suspect]
     Active Substance: DULOXETINE
     Dosage: DECREASED DOSE
     Route: 065
  10. PROMETHAZINE HYDROCHLORIDE. [Suspect]
     Active Substance: PROMETHAZINE HYDROCHLORIDE
     Dosage: DECREASED DOSE
     Route: 065
  11. PROMETHAZINE HYDROCHLORIDE. [Suspect]
     Active Substance: PROMETHAZINE HYDROCHLORIDE
     Indication: SEDATION
     Dosage: 25 MILLIGRAM, QD
     Route: 048
     Dates: start: 2016
  12. DULOXETINE. [Suspect]
     Active Substance: DULOXETINE
     Dosage: UNK
     Route: 048
  13. DESOGESTREL [Suspect]
     Active Substance: DESOGESTREL
     Dosage: UNK
     Route: 048
  14. CLOZARIL [Suspect]
     Active Substance: CLOZAPINE
     Indication: SCHIZOPHRENIA
     Dosage: 200 MILLIGRAM, QD (100 MG, BID)
     Route: 048
     Dates: start: 20180314
  15. DESOGESTREL [Suspect]
     Active Substance: DESOGESTREL
     Dosage: DECREASED DOSE
     Route: 065

REACTIONS (4)
  - Diabetes mellitus [Recovered/Resolved]
  - Constipation [Recovered/Resolved]
  - Salivary hypersecretion [Recovered/Resolved]
  - Mental disorder [Unknown]

NARRATIVE: CASE EVENT DATE: 2018
